FAERS Safety Report 4603557-0 (Version None)
Quarter: 2005Q1

REPORT INFORMATION
  Report Type: 
  Country: None (occurrence: None)
  Receive Date: 20050308
  Receipt Date: 20040120
  Transmission Date: 20050727
  Serious: Yes (Other)
  Sender: FDA-Public Use
  Company Number: HQWYE525922JAN04

PATIENT
  Sex: Female

DRUGS (1)
  1. LEDERMYCIN (DEMECLOCYCLINE, UNSPEC) [Suspect]
     Indication: INAPPROPRIATE ANTIDIURETIC HORMONE SECRETION
     Dosage: ORAL
     Route: 048

REACTIONS (2)
  - ARTHRALGIA [None]
  - ARTHRITIS [None]
